FAERS Safety Report 7631924-X (Version None)
Quarter: 2011Q3

REPORT INFORMATION
  Report Type: 
  Country: None (occurrence: None)
  Receive Date: 20110725
  Receipt Date: 20110513
  Transmission Date: 20111222
  Serious: No
  Sender: FDA-Public Use
  Company Number: US-BRISTOL-MYERS SQUIBB COMPANY-15744576

PATIENT
  Age: 62 Year
  Sex: Female
  Weight: 84 kg

DRUGS (3)
  1. ENOXAPARIN [Suspect]
     Indication: PULMONARY THROMBOSIS
  2. LIPITOR [Concomitant]
     Indication: BLOOD CHOLESTEROL INCREASED
  3. COUMADIN [Suspect]
     Indication: PULMONARY THROMBOSIS
     Dosage: BEFORE 2.5MG QD THEN INCREASED TO 7.5MG FOR 5 DAYS AND 5MG FOR 2 DAYS

REACTIONS (1)
  - INTERNATIONAL NORMALISED RATIO DECREASED [None]
